FAERS Safety Report 8909538 (Version 1)
Quarter: 2012Q4

REPORT INFORMATION
  Report Type: 
  Country: US (occurrence: US)
  Receive Date: 20121115
  Receipt Date: 20121115
  Transmission Date: 20130627
  Serious: No
  Sender: FDA-Public Use
  Company Number: US-009507513-1211USA005343

PATIENT

DRUGS (3)
  1. RIBAVIRIN [Suspect]
     Indication: CHRONIC HEPATITIS C
  2. INTERFERON (UNSPECIFIED) [Suspect]
     Indication: CHRONIC HEPATITIS C
  3. TELAPREVIR [Suspect]
     Indication: CHRONIC HEPATITIS C

REACTIONS (2)
  - Drug intolerance [Unknown]
  - Dizziness [Unknown]
